FAERS Safety Report 4531402-0 (Version None)
Quarter: 2004Q4

REPORT INFORMATION
  Report Type: 
  Country: None (occurrence: None)
  Receive Date: 20041216
  Receipt Date: 20041129
  Transmission Date: 20050328
  Serious: Yes (Death, Other)
  Sender: FDA-Public Use
  Company Number: USA041081053

PATIENT
  Age: 50 Year
  Sex: Female

DRUGS (4)
  1. ALIMTA [Suspect]
     Indication: ADENOCARCINOMA
     Dosage: 825 MG
     Dates: start: 20040101
  2. VITAMIN B-12 [Concomitant]
  3. FOLIC ACID [Concomitant]
  4. DEXAMETHASONE [Concomitant]

REACTIONS (3)
  - DYSPNOEA [None]
  - FATIGUE [None]
  - PULMONARY FIBROSIS [None]
